FAERS Safety Report 10310038 (Version 1)
Quarter: 2014Q3

REPORT INFORMATION
  Report Type: Report from Study
  Country: BE (occurrence: BE)
  Receive Date: 20140717
  Receipt Date: 20140717
  Transmission Date: 20150326
  Serious: Yes (Other)
  Sender: FDA-Public Use
  Company Number: PHHY2014BE086386

PATIENT
  Sex: Male

DRUGS (1)
  1. AFINITOR [Suspect]
     Active Substance: EVEROLIMUS
     Indication: RENAL CELL CARCINOMA
     Dosage: 10 MG, QD
     Route: 048
     Dates: end: 20140704

REACTIONS (5)
  - Mucosal inflammation [Unknown]
  - General physical health deterioration [Unknown]
  - Confusional state [Unknown]
  - Disorientation [Unknown]
  - Aphthous stomatitis [Unknown]
